FAERS Safety Report 21761626 (Version 3)
Quarter: 2023Q1

REPORT INFORMATION
  Report Type: Spontaneous
  Country: NL (occurrence: NL)
  Receive Date: 20221221
  Receipt Date: 20230103
  Transmission Date: 20230418
  Serious: Yes (Life-Threatening)
  Sender: FDA-Public Use
  Company Number: None

PATIENT
  Sex: Female
  Weight: 105 kg

DRUGS (2)
  1. DEPO-PROVERA [Suspect]
     Active Substance: MEDROXYPROGESTERONE ACETATE
     Indication: Contraception
     Dosage: FREQ:12 WK;1/12WEEKS
     Dates: start: 20200101
  2. CLOZAPINE [Suspect]
     Active Substance: CLOZAPINE
     Indication: Abnormal behaviour
     Dosage: 8 ML, 1X/DAY
     Dates: start: 20220301

REACTIONS (1)
  - Pulmonary embolism [Recovered/Resolved]
